FAERS Safety Report 8772231 (Version 1)
Quarter: 2012Q4

REPORT INFORMATION
  Report Type: 
  Country: CO (occurrence: CO)
  Receive Date: 20120905
  Receipt Date: 20120905
  Transmission Date: 20130627
  Serious: Yes (Hospitalization, Other)
  Sender: FDA-Public Use
  Company Number: CO-UCBSA-064671

PATIENT
  Age: 27 Year
  Sex: Female

DRUGS (2)
  1. CIMZIA [Suspect]
     Indication: RHEUMATOID ARTHRITIS
     Dosage: No of doses received: 1
     Route: 058
     Dates: start: 20120713, end: 2012
  2. PREDNISOLONE [Concomitant]
     Indication: RHEUMATOID ARTHRITIS
     Dosage: UNKNOWN
     Route: 048

REACTIONS (3)
  - Gastrointestinal infection [Recovered/Resolved]
  - Abdominal pain [Recovered/Resolved]
  - Pyrexia [Recovered/Resolved]
